FAERS Safety Report 18952912 (Version 1)
Quarter: 2021Q1

REPORT INFORMATION
  Report Type: Spontaneous
  Country: TR (occurrence: TR)
  Receive Date: 20210301
  Receipt Date: 20210301
  Transmission Date: 20210420
  Serious: Yes (Death, Hospitalization)
  Sender: FDA-Public Use
  Company Number: TR-ABBVIE-21K-161-3793203-00

PATIENT
  Age: 64 Year
  Sex: Female

DRUGS (3)
  1. VENETOCLAX. [Suspect]
     Active Substance: VENETOCLAX
     Route: 048
  2. AZACITIDINE. [Concomitant]
     Active Substance: AZACITIDINE
     Indication: ACUTE MYELOID LEUKAEMIA
  3. VENETOCLAX. [Suspect]
     Active Substance: VENETOCLAX
     Indication: ACUTE MYELOID LEUKAEMIA
     Dosage: 1ST CYCLE
     Route: 048

REACTIONS (13)
  - Sepsis [Fatal]
  - Aspergillus test positive [Unknown]
  - White blood cell count increased [Unknown]
  - General physical health deterioration [Unknown]
  - Pneumonia [Unknown]
  - Hypothalamo-pituitary disorder [Unknown]
  - Corynebacterium bacteraemia [Unknown]
  - Pyrexia [Unknown]
  - Neutropenia [Unknown]
  - Pneumonia fungal [Unknown]
  - Cough [Unknown]
  - Leukopenia [Unknown]
  - Lung disorder [Unknown]
